FAERS Safety Report 9277380 (Version 1)
Quarter: 2013Q2

REPORT INFORMATION
  Report Type: Spontaneous
  Country: US (occurrence: US)
  Receive Date: 20130508
  Receipt Date: 20130508
  Transmission Date: 20140414
  Serious: No
  Sender: FDA-Public Use
  Company Number: US-009507513-1305USA000537

PATIENT
  Sex: Female

DRUGS (1)
  1. SINEMET [Suspect]
     Indication: PARKINSON^S DISEASE
     Route: 048

REACTIONS (2)
  - Refusal of treatment by patient [Unknown]
  - Wrong technique in drug usage process [Unknown]
